FAERS Safety Report 6340080-X (Version None)
Quarter: 2009Q3

REPORT INFORMATION
  Report Type: 
  Country: None (occurrence: None)
  Receive Date: 20090902
  Receipt Date: 20090827
  Transmission Date: 20100115
  Serious: Yes (Other)
  Sender: FDA-Public Use
  Company Number: 2009SP022787

PATIENT
  Age: 45 Year
  Sex: Female

DRUGS (1)
  1. COPPERTONE GENERAL PROTECTION CONTINUOUS SPRAY SPF-50 [Suspect]
     Indication: DRUG USE FOR UNKNOWN INDICATION
     Dosage: BID;TOP
     Route: 061
     Dates: start: 20090806

REACTIONS (3)
  - CONDITION AGGRAVATED [None]
  - SUNBURN [None]
  - SYSTEMIC LUPUS ERYTHEMATOSUS [None]
